FAERS Safety Report 18789702 (Version 3)
Quarter: 2021Q1

REPORT INFORMATION
  Report Type: Report from Study
  Country: US (occurrence: US)
  Receive Date: 20210126
  Receipt Date: 20210216
  Transmission Date: 20210419
  Serious: Yes (Death, Hospitalization)
  Sender: FDA-Public Use
  Company Number: US-JNJFOC-20210105234

PATIENT
  Age: 63 Year
  Sex: Female
  Weight: 64.92 kg

DRUGS (3)
  1. MACITENTAN [Suspect]
     Active Substance: MACITENTAN
     Indication: PULMONARY ARTERIAL HYPERTENSION
     Route: 048
  2. ADEMPAS [Concomitant]
     Active Substance: RIOCIGUAT
  3. NIFEDIPINE. [Concomitant]
     Active Substance: NIFEDIPINE

REACTIONS (10)
  - Weight increased [Unknown]
  - Death [Fatal]
  - Blood pressure decreased [Unknown]
  - Decreased appetite [Unknown]
  - Pneumonia [Unknown]
  - Fluid retention [Unknown]
  - Dyspnoea [Unknown]
  - Fatigue [Unknown]
  - Anxiety [Unknown]
  - Dysuria [Unknown]

NARRATIVE: CASE EVENT DATE: 20201231
